FAERS Safety Report 10889494 (Version 2)
Quarter: 2015Q1

REPORT INFORMATION
  Report Type: Spontaneous
  Country: TR (occurrence: TR)
  Receive Date: 20150305
  Receipt Date: 20150309
  Transmission Date: 20150721
  Serious: Yes (Other)
  Sender: FDA-Public Use
  Company Number: TR-ALLERGAN-1503570US

PATIENT
  Sex: Male

DRUGS (6)
  1. COUMADIN [Concomitant]
     Active Substance: WARFARIN SODIUM
     Dosage: UNKNOWN
  2. BOTOX LIYOFILIZE TOZ ICEREN FLAKON [Suspect]
     Active Substance: BOTULINUM TOXIN TYPE A
     Indication: ISCHAEMIC STROKE
     Dosage: 300 UNITS, SINGLE
     Route: 030
     Dates: start: 20150223, end: 20150223
  3. SANELOC [Concomitant]
     Dosage: 50 MG, UNK
  4. OMEPROL [Concomitant]
     Active Substance: OMEPRAZOLE
     Dosage: UNKNOWN
  5. INVANZ [Concomitant]
     Active Substance: ERTAPENEM SODIUM
     Indication: URINARY TRACT INFECTION
     Dosage: UNKNOWN
  6. SEROQUEL [Concomitant]
     Active Substance: QUETIAPINE FUMARATE
     Dosage: 100 MG, UNK

REACTIONS (10)
  - Confusional state [Recovered/Resolved]
  - Eyelid ptosis [Recovered/Resolved]
  - Oxygen saturation decreased [Recovered/Resolved]
  - Somnolence [Recovered/Resolved]
  - Generalised tonic-clonic seizure [Recovered/Resolved]
  - Blood pressure increased [Recovered/Resolved]
  - Vomiting [Recovered/Resolved]
  - Speech disorder [Recovered/Resolved]
  - Mydriasis [Recovered/Resolved]
  - Off label use [Unknown]

NARRATIVE: CASE EVENT DATE: 201502
